FAERS Safety Report 24266988 (Version 2)
Quarter: 2024Q3

REPORT INFORMATION
  Report Type: Spontaneous
  Country: JP (occurrence: JP)
  Receive Date: 20240830
  Receipt Date: 20240913
  Transmission Date: 20241017
  Serious: Yes (Hospitalization, Other)
  Sender: GLAXOSMITHKLINE
  Company Number: JP-GSKJP-JP2024JPN105655AA

PATIENT

DRUGS (1)
  1. DAPRODUSTAT [Suspect]
     Active Substance: DAPRODUSTAT
     Indication: Nephrogenic anaemia
     Dosage: 4 MG

REACTIONS (6)
  - Fracture [Unknown]
  - Renal impairment [Unknown]
  - Hypophagia [Recovering/Resolving]
  - Dehydration [Unknown]
  - Fibrin D dimer increased [Unknown]
  - Blood albumin decreased [Unknown]
